FAERS Safety Report 4514277-5 (Version None)
Quarter: 2004Q4

REPORT INFORMATION
  Report Type: 
  Country: None (occurrence: None)
  Receive Date: 20040928
  Receipt Date: 20040806
  Transmission Date: 20050328
  Serious: No
  Sender: FDA-Public Use
  Company Number: 04P-163-0264675-00

PATIENT
  Age: 60 Year
  Sex: Female

DRUGS (12)
  1. HUMIRA [Suspect]
     Indication: RHEUMATOID ARTHRITIS
     Dosage: 40 MG, 1 IN 2 WK, SUBCUTANEOUS
     Route: 058
     Dates: start: 20030101
  2. HUMIRA [Suspect]
     Indication: RHEUMATOID ARTHRITIS
     Dosage: 40 MG, 1 IN 2 WK, SUBCUTANEOUS
     Route: 058
     Dates: start: 20040601
  3. RANITIDINE [Concomitant]
  4. LEVOTHYROXINE SODIUM [Concomitant]
  5. CAPTOPRIL [Concomitant]
  6. METHOTREXATE [Concomitant]
  7. FOLINIC ACID [Concomitant]
  8. SULINDAC [Concomitant]
  9. FUROSEMIDE [Concomitant]
  10. POTASSIUM CHLORIDE [Concomitant]
  11. GEMFIBROZIL [Concomitant]
  12. RESTRATISIS [Concomitant]

REACTIONS (8)
  - BODY TEMPERATURE INCREASED [None]
  - CHILLS [None]
  - EAR PAIN [None]
  - GINGIVAL PAIN [None]
  - LOSS OF CONTROL OF LEGS [None]
  - MUSCLE CRAMP [None]
  - SOMNOLENCE [None]
  - VOMITING [None]
